FAERS Safety Report 5619998-9 (Version None)
Quarter: 2008Q1

REPORT INFORMATION
  Report Type: 
  Country: None (occurrence: None)
  Receive Date: 20080208
  Receipt Date: 20080131
  Transmission Date: 20080703
  Serious: Yes (Other)
  Sender: FDA-Public Use
  Company Number: US-ROCHE-544926

PATIENT
  Age: 68 Year
  Sex: Female

DRUGS (3)
  1. BONIVA [Suspect]
     Indication: BONE DISORDER
     Route: 065
  2. NEXIUM [Concomitant]
  3. ADVAIR DISKUS 100/50 [Concomitant]

REACTIONS (1)
  - PULMONARY OEDEMA [None]
